FAERS Safety Report 9200730 (Version 3)
Quarter: 2013Q4

REPORT INFORMATION
  Report Type: Report from Study
  Country: CA (occurrence: CA)
  Receive Date: 20130401
  Receipt Date: 20131007
  Transmission Date: 20140711
  Serious: Yes (Hospitalization)
  Sender: FDA-Public Use
  Company Number: CA-BIOGENIDEC-2013BI028532

PATIENT
  Age: 52 Year
  Sex: Female
  Weight: 68 kg

DRUGS (10)
  1. BG00012 [Suspect]
     Indication: MULTIPLE SCLEROSIS
     Dates: start: 20091110, end: 20130325
  2. BG00012 [Suspect]
     Indication: MULTIPLE SCLEROSIS
     Dates: start: 20130404
  3. ZELOX (MELOXICAM) [Concomitant]
     Indication: BIPOLAR DISORDER
     Route: 048
     Dates: start: 20090601
  4. SENOKOT [Concomitant]
     Indication: CONSTIPATION
     Dates: start: 20080908
  5. DOMPERIDONE [Concomitant]
     Indication: GASTROOESOPHAGEAL REFLUX DISEASE
     Route: 048
     Dates: start: 20090501
  6. RABEPRAZOLE [Concomitant]
     Indication: GASTROOESOPHAGEAL REFLUX DISEASE
     Route: 048
     Dates: start: 20080320
  7. CARBAMAZEPINE [Concomitant]
     Indication: BIPOLAR DISORDER
     Route: 048
     Dates: start: 200809
  8. LAMOTRIGINE [Concomitant]
     Indication: BIPOLAR DISORDER
     Route: 048
     Dates: start: 20080908
  9. RAMIPRIL [Concomitant]
     Indication: HYPERTENSION
     Route: 048
     Dates: start: 20080408
  10. MULTIVITAMINE [Concomitant]
     Indication: SUPPLEMENTATION THERAPY
     Route: 048
     Dates: start: 2003

REACTIONS (1)
  - Urosepsis [Recovered/Resolved]
